FAERS Safety Report 18865546 (Version 3)
Quarter: 2021Q1

REPORT INFORMATION
  Report Type: Spontaneous
  Country: US (occurrence: US)
  Receive Date: 20210208
  Receipt Date: 20210315
  Transmission Date: 20210420
  Serious: Yes (Death, Hospitalization)
  Sender: FDA-Public Use
  Company Number: US-ELI_LILLY_AND_COMPANY-US202102001983

PATIENT
  Age: 51 Year
  Sex: Female
  Weight: 80.5 kg

DRUGS (2)
  1. REMODULIN [Suspect]
     Active Substance: TREPROSTINIL
     Indication: PULMONARY ARTERIAL HYPERTENSION
     Dosage: 0.0177 UG/KG, CONTINUOUS
     Route: 058
     Dates: start: 20210103, end: 20210220
  2. ADCIRCA [Suspect]
     Active Substance: TADALAFIL
     Indication: PULMONARY ARTERIAL HYPERTENSION
     Dosage: 40 MG, DAILY
     Route: 065
     Dates: start: 20210131, end: 20210220

REACTIONS (9)
  - Pneumonia [Fatal]
  - Hypercapnia [Fatal]
  - Right ventricular failure [Fatal]
  - Hypoxia [Fatal]
  - Acute respiratory distress syndrome [Fatal]
  - Pneumonia aspiration [Fatal]
  - Respiratory failure [Fatal]
  - Renal failure [Fatal]
  - Pulmonary arterial hypertension [Fatal]

NARRATIVE: CASE EVENT DATE: 20210128
